FAERS Safety Report 15770373 (Version 1)
Quarter: 2018Q4

REPORT INFORMATION
  Report Type: Spontaneous
  Country: US (occurrence: US)
  Receive Date: 20181228
  Receipt Date: 20181228
  Transmission Date: 20190205
  Serious: Yes (Hospitalization)
  Sender: FDA-Public Use
  Company Number: US-ELI_LILLY_AND_COMPANY-US201812011491

PATIENT
  Age: 57 Year
  Sex: Male

DRUGS (3)
  1. HUMULIN R [Suspect]
     Active Substance: INSULIN HUMAN
     Indication: PRODUCT USED FOR UNKNOWN INDICATION
     Dosage: UNK, UNKNOWN
     Route: 065
  2. ASPIRIN USA [Concomitant]
     Active Substance: ASPIRIN
     Indication: TYPE 1 DIABETES MELLITUS
     Dosage: UNK, QOD
     Route: 065
  3. HUMALOG [Suspect]
     Active Substance: INSULIN LISPRO
     Indication: PRODUCT USED FOR UNKNOWN INDICATION
     Dosage: UNK, UNKNOWN
     Route: 065

REACTIONS (6)
  - Ankle fracture [Unknown]
  - Wrong product administered [Unknown]
  - Arthralgia [Not Recovered/Not Resolved]
  - Expired product administered [Unknown]
  - Loss of consciousness [Unknown]
  - Arthritis [Unknown]

NARRATIVE: CASE EVENT DATE: 201712
